FAERS Safety Report 5165023-6 (Version None)
Quarter: 2006Q4

REPORT INFORMATION
  Report Type: 
  Country: None (occurrence: None)
  Receive Date: 20061124
  Receipt Date: 20061109
  Transmission Date: 20070319
  Serious: Yes (Death)
  Sender: FDA-Public Use
  Company Number: 2006139084

PATIENT
  Age: 19 Year
  Sex: 0

DRUGS (2)
  1. ALPRAZOLAM [Suspect]
     Dosage: ORAL
     Route: 048
  2. MORPHINE [Suspect]

REACTIONS (4)
  - CARDIAC ARREST [None]
  - DRUG ABUSER [None]
  - DRUG TOXICITY [None]
  - RESPIRATORY ARREST [None]
